FAERS Safety Report 4795398-9 (Version None)
Quarter: 2005Q4

REPORT INFORMATION
  Report Type: 
  Country: None (occurrence: None)
  Receive Date: 20051007
  Receipt Date: 20050923
  Transmission Date: 20060501
  Serious: Yes (Death, Hospitalization)
  Sender: FDA-Public Use
  Company Number: B0395110A

PATIENT
  Age: 3 Month
  Sex: Female
  Weight: 5.171 kg

DRUGS (1)
  1. TEMOVATE [Suspect]
     Indication: DERMATITIS DIAPER
     Dosage: SIX TIMES PER DAY TOPICAL
     Route: 061

REACTIONS (34)
  - ALANINE AMINOTRANSFERASE INCREASED [None]
  - APPLICATION SITE SCAR [None]
  - ASPARTATE AMINOTRANSFERASE INCREASED [None]
  - BLOOD CHLORIDE DECREASED [None]
  - BLOOD CHOLESTEROL INCREASED [None]
  - BLOOD CREATININE DECREASED [None]
  - BLOOD IMMUNOGLOBULIN M INCREASED [None]
  - BLOOD TRIGLYCERIDES INCREASED [None]
  - BLOOD UREA INCREASED [None]
  - BODY TEMPERATURE DECREASED [None]
  - COUGH [None]
  - CUSHING'S SYNDROME [None]
  - DISSEMINATED CYTOMEGALOVIRAL INFECTION [None]
  - DYSPNOEA [None]
  - ERYTHEMA [None]
  - HEART RATE INCREASED [None]
  - HEPATIC STEATOSIS [None]
  - HEPATOMEGALY [None]
  - HIGH DENSITY LIPOPROTEIN INCREASED [None]
  - HYPERTRICHOSIS [None]
  - IMMUNOSUPPRESSION [None]
  - LEUKOCYTOSIS [None]
  - LOW DENSITY LIPOPROTEIN INCREASED [None]
  - LUNG CONSOLIDATION [None]
  - OEDEMA PERIPHERAL [None]
  - ORAL CANDIDIASIS [None]
  - PLATELET COUNT INCREASED [None]
  - PNEUMONIA BACTERIAL [None]
  - RESPIRATORY RATE INCREASED [None]
  - RESTLESSNESS [None]
  - SPLEEN CONGESTION [None]
  - SPLENOMEGALY [None]
  - TELANGIECTASIA [None]
  - THERAPY NON-RESPONDER [None]
